FAERS Safety Report 10409923 (Version 1)
Quarter: 2014Q3

REPORT INFORMATION
  Report Type: Spontaneous
  Country: US (occurrence: None)
  Receive Date: 20140822
  Receipt Date: 20140822
  Transmission Date: 20150326
  Serious: Yes (Hospitalization, Other)
  Sender: FDA-Public Use
  Company Number: 201408045

PATIENT
  Age: 40 Year
  Sex: Male

DRUGS (2)
  1. TESTOPEL [Suspect]
     Active Substance: TESTOSTERONE
     Dosage: 3-22-2012,, SUBCUTANEOUS
     Route: 058
     Dates: start: 20111215, end: 20120727
  2. TESTIM [Suspect]
     Active Substance: TESTOSTERONE
     Indication: ANDROGEN REPLACEMENT THERAPY
     Dates: start: 20110907, end: 20111215

REACTIONS (10)
  - Injury [None]
  - Economic problem [None]
  - Cardiovascular disorder [None]
  - Chest discomfort [None]
  - Atrial fibrillation [None]
  - Dyspnoea [None]
  - Fear [None]
  - Anhedonia [None]
  - Sexual relationship change [None]
  - Cardiac failure congestive [None]

NARRATIVE: CASE EVENT DATE: 20120810
